FAERS Safety Report 26034643 (Version 1)
Quarter: 2025Q4

REPORT INFORMATION
  Report Type: Spontaneous
  Country: US (occurrence: US)
  Receive Date: 20251112
  Receipt Date: 20251112
  Transmission Date: 20260117
  Serious: No
  Sender: ABBVIE
  Company Number: US-ABBVIE-6545171

PATIENT
  Sex: Female

DRUGS (1)
  1. BOTOX COSMETIC [Suspect]
     Active Substance: ONABOTULINUMTOXINA
     Indication: Skin wrinkling
     Dosage: TIME INTERVAL: AS NECESSARY
     Route: 065
     Dates: start: 202510, end: 202510

REACTIONS (4)
  - Lip swelling [Not Recovered/Not Resolved]
  - Chapped lips [Unknown]
  - Swelling face [Unknown]
  - Hypoaesthesia oral [Unknown]

NARRATIVE: CASE EVENT DATE: 20250101
